FAERS Safety Report 24259181 (Version 1)
Quarter: 2024Q3

REPORT INFORMATION
  Report Type: Spontaneous
  Country: US (occurrence: US)
  Receive Date: 20240828
  Receipt Date: 20240828
  Transmission Date: 20241016
  Serious: Yes (Hospitalization, Other)
  Sender: LABORATOIRES SERB
  Company Number: US-SERB S.A.S.-2160947

PATIENT
  Age: 53 Year
  Sex: Female

DRUGS (1)
  1. CROFAB [Suspect]
     Active Substance: AGKISTRODON PISCIVORUS IMMUNE FAB ANTIVENIN (OVINE)\CROTALIDAE POLYVALENT IMMUNE FAB (OVINE)\CROTALU
     Indication: Snake bite
     Route: 042
     Dates: start: 20240824, end: 20240825

REACTIONS (4)
  - Platelet count decreased [Unknown]
  - Underdose [Unknown]
  - Necrosis [Unknown]
  - Contusion [Unknown]

NARRATIVE: CASE EVENT DATE: 20240824
